FAERS Safety Report 8530702-7 (Version None)
Quarter: 2012Q3

REPORT INFORMATION
  Report Type: 
  Country: None (occurrence: None)
  Receive Date: 20120723
  Receipt Date: 20120719
  Transmission Date: 20120928
  Serious: Yes (Hospitalization)
  Sender: FDA-Public Use
  Company Number: US-ROCHE-1077592

PATIENT
  Age: 76 Year
  Sex: Female
  Weight: 69.008 kg

DRUGS (2)
  1. BENADRYL [Concomitant]
     Route: 048
     Dates: start: 20120501
  2. MABTHERA [Suspect]
     Indication: NON-HODGKIN'S LYMPHOMA
     Route: 042
     Dates: start: 20120502, end: 20120523

REACTIONS (7)
  - PRURITUS [None]
  - VOMITING [None]
  - HEADACHE [None]
  - RASH ERYTHEMATOUS [None]
  - TACHYCARDIA [None]
  - NAUSEA [None]
  - OEDEMA PERIPHERAL [None]
